FAERS Safety Report 23110576 (Version 1)
Quarter: 2023Q4

REPORT INFORMATION
  Report Type: Spontaneous
  Country: US (occurrence: US)
  Receive Date: 20231026
  Receipt Date: 20231026
  Transmission Date: 20240110
  Serious: No
  Sender: FDA-Public Use
  Company Number: US-BRISTOL-MYERS SQUIBB COMPANY-2023-152546

PATIENT
  Sex: Female
  Weight: 59.87 kg

DRUGS (1)
  1. THALOMID [Suspect]
     Active Substance: THALIDOMIDE
     Indication: Type 2 lepra reaction
     Dosage: DOSE : 15 MG;     FREQ : EVERY OTHER DAY
     Route: 048
     Dates: start: 202107

REACTIONS (1)
  - Intentional product use issue [Unknown]
